FAERS Safety Report 7931424-3 (Version None)
Quarter: 2011Q4

REPORT INFORMATION
  Report Type: 
  Country: None (occurrence: None)
  Receive Date: 20111121
  Receipt Date: 20111116
  Transmission Date: 20120403
  Serious: Yes (Other)
  Sender: FDA-Public Use
  Company Number: US-ABBOTT-10P-163-0800984-00

PATIENT
  Sex: Male
  Weight: 68 kg

DRUGS (14)
  1. MODAFINIL [Concomitant]
     Indication: HYPERSOMNIA
     Dosage: DAILY DOSE:  UNKNOWN
     Route: 048
     Dates: start: 20090901
  2. LACTIC ACID [Concomitant]
     Indication: HYPERKERATOSIS
     Dosage: DAILY DOSE:  UNKNOWN
     Route: 061
     Dates: start: 20080101
  3. LOSARTAN [Concomitant]
     Indication: HYPERTENSION
     Dosage: DAILY DOSE:  UNKNOWN
     Route: 048
     Dates: start: 20080101
  4. ANDROGEL [Suspect]
     Indication: BLOOD TESTOSTERONE DECREASED
     Dosage: DAILY DOSE: 5 GRAM(S)
     Route: 062
     Dates: start: 20100430, end: 20100602
  5. QVAR 40 [Suspect]
     Indication: OBSTRUCTIVE AIRWAYS DISORDER
     Route: 055
     Dates: start: 20090101, end: 20111001
  6. METROGEL [Concomitant]
     Indication: ROSACEA
     Dosage: DAILY DOSE:  UNKNOWN
     Route: 061
     Dates: start: 20080101
  7. ALL OTHER THERAPEUTIC PRODUCTS [Concomitant]
     Indication: HYPERSENSITIVITY
     Dosage: DAILY DOSE:  UNKNOWN
     Route: 065
  8. ANDROGEL [Suspect]
     Indication: BLOOD TESTOSTERONE DECREASED
     Route: 061
     Dates: end: 20111001
  9. FLUTICASONE PROPIONATE [Suspect]
     Indication: HYPERSENSITIVITY
     Route: 045
     Dates: end: 20111001
  10. PLAVIX [Concomitant]
     Indication: ANTICOAGULANT THERAPY
     Dosage: DAILY DOSE:  UNKNOWN
     Route: 048
     Dates: start: 20100301
  11. FLUOCINOLONE ACETONIDE [Concomitant]
     Indication: SEBORRHOEA
     Dosage: DAILY DOSE:  UNKNOWN
     Route: 061
     Dates: start: 20080101
  12. ANDROGEL [Suspect]
     Route: 061
  13. ANDROGEL [Suspect]
     Route: 061
  14. SINEMET [Concomitant]
     Indication: PARKINSON'S DISEASE
     Dosage: DAILY DOSE:  UNKNOWN
     Route: 048
     Dates: start: 20080101

REACTIONS (6)
  - PROSTATIC SPECIFIC ANTIGEN INCREASED [None]
  - VITREOUS FLOATERS [None]
  - CHORIORETINOPATHY [None]
  - BLOOD TESTOSTERONE INCREASED [None]
  - VISUAL IMPAIRMENT [None]
  - RETINAL DETACHMENT [None]
